FAERS Safety Report 7166795-1 (Version None)
Quarter: 2010Q4

REPORT INFORMATION
  Report Type: 
  Country: None (occurrence: None)
  Receive Date: 20101213
  Receipt Date: 20101213
  Transmission Date: 20110411
  Serious: Yes (Hospitalization)
  Sender: FDA-Public Use
  Company Number: None

PATIENT
  Age: 53 Year
  Sex: Female
  Weight: 48.9885 kg

DRUGS (1)
  1. PIOGLITAZONE [Suspect]
     Indication: INVESTIGATION
     Dosage: ONE DAILY BY MOUTH
     Route: 048
     Dates: start: 20100209

REACTIONS (2)
  - ABDOMINAL PAIN LOWER [None]
  - HAEMATOCHEZIA [None]
